FAERS Safety Report 8469395-6 (Version None)
Quarter: 2012Q2

REPORT INFORMATION
  Report Type: 
  Country: None (occurrence: None)
  Receive Date: 20120626
  Receipt Date: 20120620
  Transmission Date: 20120825
  Serious: Yes (Death)
  Sender: FDA-Public Use
  Company Number: US-CELGENEUS-163-21880-12063367

PATIENT
  Sex: Male
  Weight: 84.262 kg

DRUGS (16)
  1. REVLIMID [Suspect]
     Indication: MULTIPLE MYELOMA
     Dosage: 10 MILLIGRAM
     Route: 048
     Dates: start: 20110405
  2. ARANESP [Concomitant]
     Dosage: 300 MICROGRAM
     Route: 058
  3. ASPIRIN [Concomitant]
     Dosage: 81 MILLIGRAM
     Route: 048
  4. ATENOLOL [Concomitant]
     Dosage: 50 MILLIGRAM
     Route: 048
  5. M.V.I. [Concomitant]
     Dosage: 1 TABLET
     Route: 048
  6. ZINC ACETATE [Concomitant]
     Dosage: 25 MILLIGRAM
     Route: 048
  7. AMARYL [Concomitant]
     Dosage: .5 MILLIGRAM
     Route: 048
  8. ALLOPURINOL [Concomitant]
     Dosage: 100 MILLIGRAM
     Route: 048
  9. CALCIUM WITH VITAMIN D [Concomitant]
     Dosage: 600-200MG
     Route: 048
  10. FEOSOL [Concomitant]
     Dosage: 325(65)MG
     Route: 048
  11. VITAMIN K TAB [Concomitant]
     Dosage: 5 MILLIGRAM
     Route: 048
  12. INDAPAMIDE [Concomitant]
     Dosage: 1.25 MILLIGRAM
     Route: 048
  13. HYDROCODONE BITARTRATE + ACETAMINOPHEN [Concomitant]
     Indication: PAIN
     Dosage: 5-500MG
     Route: 048
  14. PROCHLORPERAZINE MALEATE [Concomitant]
     Indication: NAUSEA
     Dosage: 10 MILLIGRAM
     Route: 048
  15. ACETAMINOPHEN [Concomitant]
     Dosage: 1000 MILLIGRAM
     Route: 048
  16. LOSARTAN POTASSIUM [Concomitant]
     Dosage: 50 MILLIGRAM
     Route: 048

REACTIONS (1)
  - MULTIPLE MYELOMA [None]
